FAERS Safety Report 4831345-9 (Version None)
Quarter: 2005Q4

REPORT INFORMATION
  Report Type: 
  Country: None (occurrence: None)
  Receive Date: 20051118
  Receipt Date: 20051110
  Transmission Date: 20060501
  Serious: Yes (Other)
  Sender: FDA-Public Use
  Company Number: 2005AP05923

PATIENT
  Age: 63 Year
  Sex: Male
  Weight: 69 kg

DRUGS (2)
  1. CARBOCAIN [Suspect]
     Indication: EPIDURAL ANAESTHESIA
     Dosage: AMPULE
     Route: 008
  2. CARBOCAIN [Suspect]
     Dosage: AMPULE
     Route: 008

REACTIONS (1)
  - DRUG TOXICITY [None]
